FAERS Safety Report 9240668 (Version 1)
Quarter: 2013Q1

REPORT INFORMATION
  Report Type: Spontaneous
  Country: US (occurrence: None)
  Receive Date: 20121120
  Receipt Date: 20121120
  Transmission Date: 20140127
  Serious: No
  Sender: FDA-Public Use
  Company Number: 1000038758

PATIENT
  Age: 59 Year
  Sex: Female

DRUGS (14)
  1. VIIBRYD [Suspect]
     Indication: DEPRESSION
     Dosage: 10MG, (10MG, 1 IN 1 D), ORAL
     Route: 048
     Dates: start: 20120622, end: 20120628
  2. VIIBRYD [Suspect]
     Indication: DEPRESSION
     Dosage: 20MG, 1 IN 1 D, ORAL
     Route: 048
     Dates: start: 20120917
  3. CYMBALTA (DULOXETINE HYDROCHLORIDE) [Concomitant]
  4. PROBIOTIC NOS (PROBIOTIC NOS) [Concomitant]
  5. METOPROLOL (METOPROLOL) [Concomitant]
  6. ALTACE (RAMIPRIL) [Concomitant]
  7. ZYRTEC (CETIRIZINE HYDROCHLORIDE) [Concomitant]
  8. NEXIUM [Concomitant]
  9. OPANA [Concomitant]
  10. GABAPENTIN (GABAPENTIN) [Concomitant]
  11. LEVOTHYROXINE (LECOTHYROXINE SODIUM) [Concomitant]
  12. FLOMASE (FLUTICASONE PROPIONATE) [Concomitant]
  13. TEMAZEPAM (TEMAZEPAM) [Concomitant]
  14. OXYTROL (OXYBUTYNI) [Concomitant]

REACTIONS (5)
  - Diarrhoea [None]
  - Hyperhidrosis [None]
  - Abdominal discomfort [None]
  - Nausea [None]
  - Decreased appetite [None]
